FAERS Safety Report 6052723-9 (Version None)
Quarter: 2009Q1

REPORT INFORMATION
  Report Type: 
  Country: None (occurrence: None)
  Receive Date: 20090127
  Receipt Date: 20090121
  Transmission Date: 20090719
  Serious: Yes (Hospitalization)
  Sender: FDA-Public Use
  Company Number: FR-BRISTOL-MYERS SQUIBB COMPANY-14478895

PATIENT
  Age: 87 Year
  Sex: Female

DRUGS (4)
  1. COUMADIN [Suspect]
     Dosage: 1 DOSAGE FORM= .5 (UNITS NOT SPECIFIED).
     Dates: start: 20081013, end: 20081021
  2. CORDARONE [Concomitant]
  3. FORLAX [Concomitant]
  4. ZYLORIC [Concomitant]

REACTIONS (2)
  - DEHYDRATION [None]
  - DIARRHOEA [None]
